FAERS Safety Report 8965528 (Version 1)
Quarter: 2012Q4

REPORT INFORMATION
  Report Type: Spontaneous
  Country: US (occurrence: None)
  Receive Date: 20121212
  Receipt Date: 20121212
  Transmission Date: 20130627
  Serious: No
  Sender: FDA-Public Use
  Company Number: None

PATIENT
  Age: 61 Year
  Sex: Female
  Weight: 76.2 kg

DRUGS (2)
  1. PEGASYS [Suspect]
     Indication: HEPATITIS C
     Dosage: 180mcg weekly subcutaneous
     Route: 058
     Dates: start: 20120717, end: 20121210
  2. RIBASPHERE [Suspect]
     Indication: HEPATITIS C
     Dosage: 1999mg/___ Daily PO
     Route: 048
     Dates: start: 20120717, end: 20121210

REACTIONS (2)
  - Respiratory disorder [None]
  - Adverse drug reaction [None]
